FAERS Safety Report 14637612 (Version 1)
Quarter: 2018Q1

REPORT INFORMATION
  Report Type: Report from Study
  Country: US (occurrence: US)
  Receive Date: 20180314
  Receipt Date: 20180314
  Transmission Date: 20180509
  Serious: Yes (Other)
  Sender: FDA-Public Use
  Company Number: PHEH2018US009890

PATIENT
  Sex: Female

DRUGS (1)
  1. COSENTYX [Suspect]
     Active Substance: SECUKINUMAB
     Indication: PRODUCT USED FOR UNKNOWN INDICATION
     Dosage: 300 MG, QMO
     Route: 058

REACTIONS (6)
  - Pain [Unknown]
  - Impaired gastric emptying [Unknown]
  - Gait disturbance [Unknown]
  - Weight increased [Unknown]
  - Mobility decreased [Unknown]
  - Dyspepsia [Unknown]
